FAERS Safety Report 7186727-X (Version None)
Quarter: 2010Q4

REPORT INFORMATION
  Report Type: 
  Country: None (occurrence: None)
  Receive Date: 20101222
  Receipt Date: 20101217
  Transmission Date: 20110411
  Serious: Yes (Other)
  Sender: FDA-Public Use
  Company Number: US-PFIZER INC-2010174848

PATIENT
  Age: 55 Year
  Sex: Female
  Weight: 54.422 kg

DRUGS (1)
  1. XANAX [Suspect]
     Indication: SLEEP DISORDER
     Dosage: UNK

REACTIONS (3)
  - DRUG DEPENDENCE [None]
  - PANIC ATTACK [None]
  - WITHDRAWAL SYNDROME [None]
